FAERS Safety Report 9752013 (Version 1)
Quarter: 2013Q4

REPORT INFORMATION
  Report Type: Spontaneous
  Country: US (occurrence: None)
  Receive Date: 20131212
  Receipt Date: 20131212
  Transmission Date: 20140711
  Serious: Yes (Other)
  Sender: FDA-Public Use
  Company Number: None

PATIENT
  Sex: Male

DRUGS (1)
  1. LIDOCAINE [Suspect]
     Indication: BACK PAIN
     Dosage: 5 % 18 HRS 12 HRS PATCH
     Dates: start: 20131008, end: 20131205

REACTIONS (2)
  - Drug ineffective [None]
  - Product adhesion issue [None]
